FAERS Safety Report 10237434 (Version 3)
Quarter: 2014Q4

REPORT INFORMATION
  Report Type: Report from Study
  Country: JP (occurrence: JP)
  Receive Date: 20140615
  Receipt Date: 20141030
  Transmission Date: 20150528
  Serious: Yes (Hospitalization, Other)
  Sender: FDA-Public Use
  Company Number: JP-009507513-1306JPN001649

PATIENT
  Age: 73 Year
  Sex: Male
  Weight: 68 kg

DRUGS (7)
  1. JANUVIA [Suspect]
     Active Substance: SITAGLIPTIN PHOSPHATE
     Indication: TYPE 2 DIABETES MELLITUS
     Dosage: 100 MG, QD
     Route: 048
     Dates: start: 20120526, end: 20130218
  2. GLUTAMEAL [Concomitant]
     Indication: TYPE 2 DIABETES MELLITUS
     Dosage: 40 MG, TID
     Route: 048
     Dates: end: 20120823
  3. JANUVIA [Suspect]
     Active Substance: SITAGLIPTIN PHOSPHATE
     Indication: TYPE 2 DIABETES MELLITUS
     Dosage: 50 MG, QD
     Route: 048
     Dates: start: 20130219
  4. GLIMEPIRIDE. [Concomitant]
     Active Substance: GLIMEPIRIDE
     Indication: TYPE 2 DIABETES MELLITUS
     Dosage: 1 MG, QD
     Route: 048
     Dates: start: 20130820
  5. BETAKYL [Concomitant]
     Indication: HYPERTENSION
     Dosage: 10 MG, QD
     Route: 048
  6. BETAKYL [Concomitant]
     Indication: ANGINA PECTORIS
  7. RABEPRAZOLE SODIUM. [Concomitant]
     Active Substance: RABEPRAZOLE SODIUM
     Indication: GASTRITIS
     Dosage: 10 MG, QD
     Route: 048
     Dates: start: 20130528

REACTIONS (3)
  - Surgery [Unknown]
  - Rectal cancer [Unknown]
  - Angina pectoris [Not Recovered/Not Resolved]

NARRATIVE: CASE EVENT DATE: 20120704
